FAERS Safety Report 14901160 (Version 1)
Quarter: 2018Q2

REPORT INFORMATION
  Report Type: Spontaneous
  Country: US (occurrence: US)
  Receive Date: 20180427
  Receipt Date: 20180427
  Transmission Date: 20180711
  Serious: No
  Sender: FDA-Public Use
  Company Number: None

PATIENT
  Age: 44 Year
  Sex: Female

DRUGS (1)
  1. SUTENT [Suspect]
     Active Substance: SUNITINIB MALATE

REACTIONS (6)
  - Impaired healing [None]
  - Malignant neoplasm progression [None]
  - Muscular weakness [None]
  - Fatigue [None]
  - Blood pressure increased [None]
  - Thyroid disorder [None]

NARRATIVE: CASE EVENT DATE: 20180427
